FAERS Safety Report 8019904-6 (Version None)
Quarter: 2012Q1

REPORT INFORMATION
  Report Type: 
  Country: None (occurrence: None)
  Receive Date: 20120103
  Receipt Date: 20111227
  Transmission Date: 20120608
  Serious: Yes (Other)
  Sender: FDA-Public Use
  Company Number: US-BAYER-2011-123827

PATIENT
  Sex: Female

DRUGS (2)
  1. YASMIN [Suspect]
     Dosage: UNK
     Dates: start: 20020501, end: 20030301
  2. YASMIN [Suspect]
     Dosage: UNK
     Dates: start: 20030301

REACTIONS (8)
  - INJURY [None]
  - GENERAL PHYSICAL HEALTH DETERIORATION [None]
  - CONFUSIONAL STATE [None]
  - EMOTIONAL DISTRESS [None]
  - ISCHAEMIC STROKE [None]
  - APHASIA [None]
  - PAIN [None]
  - ANXIETY [None]
